FAERS Safety Report 8550099-6 (Version None)
Quarter: 2012Q3

REPORT INFORMATION
  Report Type: 
  Country: None (occurrence: None)
  Receive Date: 20120718
  Receipt Date: 20120706
  Transmission Date: 20120928
  Serious: Yes (Other)
  Sender: FDA-Public Use
  Company Number: AUR-APL-2012-03036

PATIENT
  Sex: Female

DRUGS (3)
  1. TOPROL-XL [Suspect]
     Indication: PRODUCT USED FOR UNKNOWN INDICATION
     Dosage: ORAL
     Route: 048
     Dates: start: 20060101
  2. ATENOLOL [Suspect]
     Indication: PRODUCT USED FOR UNKNOWN INDICATION
     Dosage: ORAL
     Route: 048
  3. METOPROLOL SUCCINATE [Suspect]
     Indication: PRODUCT USED FOR UNKNOWN INDICATION
     Dosage: UNKNOWN
     Dates: start: 20120301

REACTIONS (7)
  - MALAISE [None]
  - CHEST PAIN [None]
  - HYPERTROPHIC CARDIOMYOPATHY [None]
  - NAUSEA [None]
  - FATIGUE [None]
  - HEADACHE [None]
  - PRODUCT SUBSTITUTION ISSUE [None]
